FAERS Safety Report 9045241 (Version 1)
Quarter: 2013Q1

REPORT INFORMATION
  Report Type: Report from Study
  Country: CA (occurrence: CA)
  Receive Date: 20130131
  Receipt Date: 20130131
  Transmission Date: 20140127
  Serious: Yes (Other)
  Sender: FDA-Public Use
  Company Number: CA-JNJFOC-20130112107

PATIENT
  Age: 50 None
  Sex: Female
  Weight: 96.2 kg

DRUGS (7)
  1. REMICADE [Suspect]
     Indication: CROHN^S DISEASE
     Route: 042
     Dates: start: 20100712
  2. REMICADE [Suspect]
     Indication: CROHN^S DISEASE
     Route: 042
     Dates: start: 20121220
  3. REMICADE [Suspect]
     Indication: CROHN^S DISEASE
     Dosage: 30TH INFUSION
     Route: 042
     Dates: start: 20130117
  4. IRON [Concomitant]
     Route: 065
  5. MULTIVITAMINS [Concomitant]
     Route: 065
  6. TYLENOL [Concomitant]
     Route: 065
  7. DEMEROL [Concomitant]
     Route: 065

REACTIONS (3)
  - Haematochezia [Recovering/Resolving]
  - Intestinal obstruction [Recovering/Resolving]
  - Haemoglobin decreased [Unknown]
